FAERS Safety Report 4888350-6 (Version None)
Quarter: 2006Q1

REPORT INFORMATION
  Report Type: 
  Country: None (occurrence: None)
  Receive Date: 20060123
  Receipt Date: 20050707
  Transmission Date: 20060701
  Serious: Yes (Disabling)
  Sender: FDA-Public Use
  Company Number: DE-BRISTOL-MYERS SQUIBB COMPANY-13029921

PATIENT
  Age: 13 Year
  Sex: Female
  Weight: 37 kg

DRUGS (1)
  1. CARBIDOPA + LEVODOPA [Suspect]
     Indication: DYSTONIA
     Dosage: DOSAGE: 100/150 MG DAILY
     Dates: start: 20031201, end: 20050401

REACTIONS (1)
  - DEAFNESS [None]
